FAERS Safety Report 5478376-6 (Version None)
Quarter: 2007Q4

REPORT INFORMATION
  Report Type: 
  Country: None (occurrence: None)
  Receive Date: 20071005
  Receipt Date: 20070928
  Transmission Date: 20080405
  Serious: Yes (Hospitalization, Disabling, Other)
  Sender: FDA-Public Use
  Company Number: B0486783A

PATIENT
  Age: 68 Year
  Sex: Male
  Weight: 90 kg

DRUGS (15)
  1. AVANDIA [Suspect]
     Dosage: 4MG TWICE PER DAY
     Route: 048
  2. AMLODIPINE [Suspect]
  3. BISOPROLOL FUMARATE [Concomitant]
     Dosage: 7.5MG PER DAY
  4. SIMVASTATIN [Concomitant]
     Dosage: 20MG PER DAY
  5. AMITRIPTYLINE HCL [Concomitant]
     Dosage: 25MG PER DAY
  6. ISMN [Concomitant]
     Dosage: 20MG PER DAY
  7. ZOPICLONE [Concomitant]
  8. ASPIRIN [Concomitant]
     Dosage: 75MG PER DAY
  9. OMEPRAZOLE [Concomitant]
     Dosage: 10MG PER DAY
  10. CLOPIDOGREL [Concomitant]
     Dosage: 75MG PER DAY
  11. FLUOXETINE [Concomitant]
     Dosage: 20MG PER DAY
  12. METFORMIN HCL [Concomitant]
     Dosage: 20MG PER DAY
  13. FRUSEMIDE [Concomitant]
     Dosage: 20MG PER DAY
  14. CANDESARTAN CILEXETIL [Concomitant]
     Dosage: 32MG PER DAY
  15. NAPROXEN [Concomitant]
     Dosage: 250MG TWICE PER DAY

REACTIONS (12)
  - ANGINA PECTORIS [None]
  - BRAIN NATRIURETIC PEPTIDE INCREASED [None]
  - CARDIAC FAILURE [None]
  - CORONARY ARTERY DISEASE [None]
  - DYSPNOEA [None]
  - DYSPNOEA EXERTIONAL [None]
  - FLUID RETENTION [None]
  - HYPERHIDROSIS [None]
  - NECK PAIN [None]
  - OEDEMA PERIPHERAL [None]
  - PAIN [None]
  - PAIN IN EXTREMITY [None]
